FAERS Safety Report 8519527-6 (Version None)
Quarter: 2012Q3

REPORT INFORMATION
  Report Type: 
  Country: None (occurrence: None)
  Receive Date: 20120718
  Receipt Date: 20120706
  Transmission Date: 20120928
  Serious: Yes (Other)
  Sender: FDA-Public Use
  Company Number: US-ELI_LILLY_AND_COMPANY-US201206001903

PATIENT
  Sex: Male
  Weight: 65.306 kg

DRUGS (1)
  1. BYETTA [Suspect]
     Indication: TYPE 2 DIABETES MELLITUS
     Dosage: 10 UG, BID
     Route: 058
     Dates: start: 20071008, end: 20120515

REACTIONS (18)
  - ACANTHOSIS NIGRICANS [None]
  - LEUKOPENIA [None]
  - HEADACHE [None]
  - HYPOTENSION [None]
  - INTESTINAL POLYP [None]
  - HYPERLIPIDAEMIA [None]
  - ARTHRITIS [None]
  - VOMITING [None]
  - HEPATIC CYST [None]
  - NAUSEA [None]
  - PANCREATIC INSUFFICIENCY [None]
  - MIGRAINE [None]
  - CHEST PAIN [None]
  - ABDOMINAL DISCOMFORT [None]
  - GASTRITIS [None]
  - GALLBLADDER POLYP [None]
  - PANCREATITIS CHRONIC [None]
  - ULCER [None]
